FAERS Safety Report 6413098-6 (Version None)
Quarter: 2009Q4

REPORT INFORMATION
  Report Type: 
  Country: None (occurrence: None)
  Receive Date: 20091022
  Receipt Date: 20091022
  Transmission Date: 20100525
  Serious: No
  Sender: FDA-Public Use
  Company Number: None

PATIENT
  Age: 11 Year
  Sex: Male

DRUGS (2)
  1. POTASSIUM CHLORIDE 40MEQ [Suspect]
     Dosage: X1 IV
     Route: 042
  2. POTASSIUM CHLORIDE 30MEQ [Suspect]
     Dosage: X1 IV
     Route: 042

REACTIONS (1)
  - NO ADVERSE EVENT [None]
